FAERS Safety Report 9097454 (Version 2)
Quarter: 2013Q3

REPORT INFORMATION
  Report Type: Spontaneous
  Country: FR (occurrence: FR)
  Receive Date: 20130212
  Receipt Date: 20130924
  Transmission Date: 20140515
  Serious: Yes (Hospitalization)
  Sender: FDA-Public Use
  Company Number: FR-JNJFOC-20130202311

PATIENT
  Age: 15 Year
  Sex: Female

DRUGS (3)
  1. REMICADE [Suspect]
     Indication: COLITIS ULCERATIVE
     Dosage: 25 OR 28-JAN-2013
     Route: 042
     Dates: start: 201301, end: 2013
  2. REMICADE [Suspect]
     Indication: COLITIS ULCERATIVE
     Route: 042
     Dates: start: 2013
  3. IMUREL [Suspect]
     Indication: COLITIS ULCERATIVE
     Route: 065
     Dates: start: 20120910

REACTIONS (1)
  - Bone marrow failure [Recovered/Resolved]
